FAERS Safety Report 6790290-2 (Version None)
Quarter: 2010Q2

REPORT INFORMATION
  Report Type: 
  Country: None (occurrence: None)
  Receive Date: 20100624
  Receipt Date: 20100616
  Transmission Date: 20101027
  Serious: Yes (Death, Hospitalization)
  Sender: FDA-Public Use
  Company Number: JP-BRISTOL-MYERS SQUIBB COMPANY-15153901

PATIENT
  Age: 78 Year
  Sex: Male

DRUGS (1)
  1. VEPESID [Suspect]
     Indication: LYMPHOMA
     Route: 048

REACTIONS (2)
  - PNEUMONIA [None]
  - PNEUMOTHORAX [None]
